FAERS Safety Report 8212962-5 (Version None)
Quarter: 2012Q1

REPORT INFORMATION
  Report Type: 
  Country: None (occurrence: None)
  Receive Date: 20120315
  Receipt Date: 20120312
  Transmission Date: 20120608
  Serious: Yes (Other)
  Sender: FDA-Public Use
  Company Number: US-PFIZER INC-2012065516

PATIENT
  Sex: Female
  Weight: 89.796 kg

DRUGS (15)
  1. PRISTIQ [Suspect]
     Dosage: 100 MG, 1X/DAY
     Route: 048
  2. PRISTIQ [Suspect]
     Dosage: 50 MG, ALTERNATE DAY
     Route: 048
     Dates: start: 20120101
  3. ADDERALL 5 [Suspect]
     Indication: NERVOUS SYSTEM DISORDER
  4. XANAX [Suspect]
     Indication: ANXIETY
     Dosage: 0.25 MG UP TO FOUR TO FIVE TABLETS, UNK
     Route: 048
  5. XANAX [Suspect]
     Indication: HEADACHE
  6. PRISTIQ [Suspect]
     Indication: DEPRESSION
     Dosage: 50 MG, 1X/DAY
     Route: 048
  7. NEURONTIN [Suspect]
     Indication: MUSCLE SPASTICITY
     Dosage: 300 MG, DAILY
  8. NEURONTIN [Suspect]
     Dosage: 1600 MG, DAILY
  9. TRAMADOL HCL [Suspect]
     Indication: PAIN
     Dosage: 50 MG TO 300 MG, DAILY
  10. PERCOCET [Suspect]
     Indication: PAIN
     Dosage: 325/10 MG UP TO EIGHT TABLETS, AS NEEDED
     Route: 048
  11. PRISTIQ [Suspect]
     Dosage: 50 MG, 1X/DAY
     Route: 048
  12. BACLOFEN [Suspect]
     Indication: MUSCLE SPASMS
     Dosage: UNK
  13. BETASERON [Suspect]
     Indication: MULTIPLE SCLEROSIS
     Dosage: 0.25/1 MG/ML, ALTERNATE DAY
  14. SYNTHROID [Suspect]
     Indication: THYROID DISORDER
     Dosage: 50 UG, DAILY
  15. ADDERALL 5 [Suspect]
     Indication: ANXIETY
     Dosage: 30 MG, DAILY

REACTIONS (6)
  - WITHDRAWAL SYNDROME [None]
  - ANXIETY [None]
  - DETOXIFICATION [None]
  - CATATONIA [None]
  - HEADACHE [None]
  - DYSPEPSIA [None]
